FAERS Safety Report 22535493 (Version 1)
Quarter: 2023Q2

REPORT INFORMATION
  Report Type: Spontaneous
  Country: GB (occurrence: GB)
  Receive Date: 20230608
  Receipt Date: 20230608
  Transmission Date: 20230722
  Serious: Yes (Life-Threatening, Other)
  Sender: FDA-Public Use
  Company Number: GB-ADVANZ PHARMA-202305004426

PATIENT

DRUGS (1)
  1. PREDNISOLONE [Suspect]
     Active Substance: PREDNISOLONE
     Indication: Immune thrombocytopenia
     Dosage: UNK

REACTIONS (7)
  - Immune thrombocytopenia [Unknown]
  - Condition aggravated [Unknown]
  - Steroid withdrawal syndrome [Unknown]
  - Platelet count decreased [Unknown]
  - Therapy non-responder [Unknown]
  - Therapy partial responder [Unknown]
  - Exposure during pregnancy [Unknown]
